FAERS Safety Report 6382883-1 (Version None)
Quarter: 2009Q3

REPORT INFORMATION
  Report Type: 
  Country: None (occurrence: None)
  Receive Date: 20090930
  Receipt Date: 20090909
  Transmission Date: 20100115
  Serious: Yes (Other)
  Sender: FDA-Public Use
  Company Number: JP-ROCHE-658502

PATIENT
  Sex: Female

DRUGS (4)
  1. TAMIFLU [Suspect]
     Indication: INFLUENZA
     Route: 048
     Dates: start: 20090903, end: 20090907
  2. LOXONIN [Concomitant]
     Dosage: DOSAGE FORM: ORAL FORMULATION (NOT OTHERWISE SPECIFIED).
     Route: 048
     Dates: start: 20090902, end: 20090905
  3. RESPLEN [Concomitant]
     Dosage: DOSAGE FORM: ORAL FORMULATION (NOT OTHERWISE SPECIFIED).
     Route: 048
     Dates: start: 20090902, end: 20090905
  4. SEROQUEL [Concomitant]
     Dosage: DOSAGE FORM: ORAL FORMULATION (NOT OTHERWISE SPECIFIED).
     Route: 048
     Dates: start: 20090707

REACTIONS (1)
  - HALLUCINATION, AUDITORY [None]
